FAERS Safety Report 10583619 (Version 2)
Quarter: 2014Q4

REPORT INFORMATION
  Report Type: Report from Study
  Country: GR (occurrence: GR)
  Receive Date: 20141114
  Receipt Date: 20141114
  Transmission Date: 20150529
  Serious: Yes (Death, Other)
  Sender: FDA-Public Use
  Company Number: PHHY2014GR038073

PATIENT
  Age: 63 Year
  Sex: Male
  Weight: 65 kg

DRUGS (2)
  1. AFINITOR [Suspect]
     Active Substance: EVEROLIMUS
     Indication: PANCREATIC NEUROENDOCRINE TUMOUR METASTATIC
     Dosage: 10 MG, QD
     Route: 048
     Dates: start: 20140129, end: 20140206
  2. AFINITOR [Suspect]
     Active Substance: EVEROLIMUS
     Dosage: 10 MG, QD
     Route: 048
     Dates: start: 20140223, end: 20140522

REACTIONS (1)
  - Blood glucose increased [Fatal]

NARRATIVE: CASE EVENT DATE: 20140301
